FAERS Safety Report 4511908-0 (Version None)
Quarter: 2004Q4

REPORT INFORMATION
  Report Type: 
  Country: None (occurrence: None)
  Receive Date: 20041123
  Receipt Date: 20041117
  Transmission Date: 20050328
  Serious: Yes (Hospitalization)
  Sender: FDA-Public Use
  Company Number: S04-USA-01550-01

PATIENT
  Age: 15 Year
  Sex: Female

DRUGS (5)
  1. LEXAPRO [Suspect]
     Indication: DEPRESSION
     Dosage: 30 MG QD PO
     Route: 048
     Dates: start: 20040318, end: 20040401
  2. LEXAPRO [Suspect]
     Indication: DEPRESSION
     Dosage: 20 MG QD PO
     Route: 048
     Dates: start: 20040401, end: 20040901
  3. LEXAPRO [Suspect]
     Indication: DEPRESSION
     Dosage: 10 MG QD PO
     Route: 048
     Dates: start: 20040213, end: 20040303
  4. LEXAPRO [Suspect]
     Indication: DEPRESSION
     Dosage: 20 MG QD PO
     Route: 048
     Dates: start: 20040304, end: 20040317
  5. RISPERDAL [Concomitant]

REACTIONS (5)
  - DEPRESSION [None]
  - DISEASE PROGRESSION [None]
  - INTENTIONAL SELF-INJURY [None]
  - PERSONALITY DISORDER [None]
  - SUICIDAL IDEATION [None]
